FAERS Safety Report 5239227-8 (Version None)
Quarter: 2007Q1

REPORT INFORMATION
  Report Type: 
  Country: None (occurrence: None)
  Receive Date: 20061208
  Receipt Date: 20050606
  Transmission Date: 20070707
  Serious: Yes (Other)
  Sender: FDA-Public Use
  Company Number: 2005UW08724

PATIENT
  Age: 51 Year
  Sex: Male
  Weight: 86.182 kg

DRUGS (9)
  1. CRESTOR [Suspect]
     Indication: BLOOD CHOLESTEROL INCREASED
     Dosage: 10 MG QD PO
     Route: 048
  2. LISINOPRIL [Concomitant]
  3. COUMADIN [Concomitant]
  4. MORPHINE SULFATE [Concomitant]
  5. SOMA [Concomitant]
  6. ANTACID TAB [Concomitant]
  7. MIRALAX [Concomitant]
  8. DILAUDID [Concomitant]
  9. NITROGLYCERIN [Concomitant]

REACTIONS (9)
  - ANGINA PECTORIS [None]
  - ARTHRALGIA [None]
  - ASTHENIA [None]
  - INCREASED TENDENCY TO BRUISE [None]
  - MALAISE [None]
  - MUSCLE TIGHTNESS [None]
  - MYALGIA [None]
  - NAUSEA [None]
  - PYREXIA [None]
